FAERS Safety Report 4976825-0 (Version None)
Quarter: 2006Q1

REPORT INFORMATION
  Report Type: 
  Country: None (occurrence: None)
  Receive Date: 20060221
  Receipt Date: 20051213
  Transmission Date: 20060701
  Serious: Yes (Other)
  Sender: FDA-Public Use
  Company Number: PHEH2005US13487

PATIENT
  Age: 65 Year
  Sex: Female

DRUGS (1)
  1. DIOVAN [Suspect]
     Indication: HYPERTENSION
     Dosage: ORAL
     Route: 048
     Dates: start: 20050901

REACTIONS (4)
  - CHAPPED LIPS [None]
  - FACE OEDEMA [None]
  - PHARYNGOLARYNGEAL PAIN [None]
  - RASH [None]
